FAERS Safety Report 5860364-9 (Version None)
Quarter: 2008Q3

REPORT INFORMATION
  Report Type: 
  Country: None (occurrence: None)
  Receive Date: 20080827
  Receipt Date: 20070731
  Transmission Date: 20090109
  Serious: No
  Sender: FDA-Public Use
  Company Number: US-ABBOTT-07P-163-0376220-00

PATIENT
  Sex: Female
  Weight: 129.3 kg

DRUGS (7)
  1. NIASPAN [Suspect]
     Indication: BLOOD CHOLESTEROL
     Route: 048
     Dates: start: 20070730
  2. TETRACYCLINE [Concomitant]
     Indication: ROSACEA
     Route: 048
  3. ESTROGENS CONJUGATED [Concomitant]
     Indication: HORMONE REPLACEMENT THERAPY
     Route: 048
  4. TOLTERODINE TARTRATE [Concomitant]
     Indication: MICTURITION URGENCY
     Route: 048
  5. ETODLAC [Concomitant]
     Indication: ARTHRITIS
     Route: 048
  6. LEVOTHYROXINE SODIUM [Concomitant]
     Indication: THYROID DISORDER
     Route: 048
  7. ESOMEPRAZOLE MAGNESIUM [Concomitant]
     Indication: HIATUS HERNIA
     Route: 048

REACTIONS (3)
  - ABDOMINAL PAIN UPPER [None]
  - DIARRHOEA [None]
  - NAUSEA [None]
